FAERS Safety Report 7006136-3 (Version None)
Quarter: 2010Q3

REPORT INFORMATION
  Report Type: 
  Country: None (occurrence: None)
  Receive Date: 20100921
  Receipt Date: 20100913
  Transmission Date: 20110219
  Serious: Yes (Other)
  Sender: FDA-Public Use
  Company Number: US-PFIZER INC-2007040537

PATIENT
  Sex: Female
  Weight: 73.923 kg

DRUGS (10)
  1. CHANTIX [Suspect]
     Indication: SMOKING CESSATION THERAPY
     Dosage: 0.5 MG, 1X/DAY
     Route: 048
     Dates: start: 20070401, end: 20070401
  2. CLONAZEPAM [Concomitant]
  3. TRAZODONE [Concomitant]
  4. OXYBUTYNIN [Concomitant]
  5. ALL OTHER THERAPEUTIC PRODUCTS [Concomitant]
  6. OMEPRAZOLE [Concomitant]
  7. NAPROSYN [Concomitant]
  8. MS CONTIN [Concomitant]
  9. PERCOCET [Concomitant]
  10. DITROPAN [Concomitant]
     Indication: DEPRESSION
     Dosage: UNK

REACTIONS (7)
  - DYSKINESIA [None]
  - MALAISE [None]
  - MYALGIA [None]
  - NAUSEA [None]
  - RESTLESS LEGS SYNDROME [None]
  - SOMNOLENCE [None]
  - VOMITING [None]
